FAERS Safety Report 7991544-4 (Version None)
Quarter: 2011Q4

REPORT INFORMATION
  Report Type: 
  Country: None (occurrence: None)
  Receive Date: 20111219
  Receipt Date: 20111215
  Transmission Date: 20120403
  Serious: Yes (Other)
  Sender: FDA-Public Use
  Company Number: US-ROCHE-1018137

PATIENT

DRUGS (1)
  1. ZELBORAF [Suspect]
     Indication: PRODUCT USED FOR UNKNOWN INDICATION

REACTIONS (5)
  - ABDOMINAL PAIN UPPER [None]
  - EYE IRRITATION [None]
  - ERYTHEMA [None]
  - LACRIMATION INCREASED [None]
  - RENAL IMPAIRMENT [None]
